FAERS Safety Report 16420613 (Version 5)
Quarter: 2022Q1

REPORT INFORMATION
  Report Type: Spontaneous
  Country: BR (occurrence: BR)
  Receive Date: 20190612
  Receipt Date: 20220217
  Transmission Date: 20220423
  Serious: Yes (Other)
  Sender: FDA-Public Use
  Company Number: BR-PFIZER INC-2014148880

PATIENT
  Age: 21 Year
  Sex: Male

DRUGS (8)
  1. LORAZEPAM [Suspect]
     Active Substance: LORAZEPAM
     Indication: Insomnia
     Dosage: 2 MG, DAILY
     Route: 048
     Dates: start: 20000210
  2. LORAZEPAM [Suspect]
     Active Substance: LORAZEPAM
     Indication: Nervousness
     Dosage: 3 MG UNK (1 TABLET AND A HALF)
     Route: 048
  3. LORAZEPAM [Suspect]
     Active Substance: LORAZEPAM
     Dosage: 2.5 MG UNK (1 TABLET AND 1/4)
     Route: 048
  4. LORAZEPAM [Suspect]
     Active Substance: LORAZEPAM
     Dosage: 0.5 MG UNK (1/4 OF THE TABLET)
     Route: 048
  5. LORAZEPAM [Suspect]
     Active Substance: LORAZEPAM
     Dosage: 1 DF, DAILY (1 TABLET OF 1MG AND 1 TABLET OF 1MG TAKING ONE PART THAT WOULD BE EQUAL TO 12.5% OF TA)
     Route: 048
     Dates: start: 200310, end: 200403
  6. RIVOTRIL [Concomitant]
     Active Substance: CLONAZEPAM
     Dosage: UNK
  7. FLUNITRAZEPAM [Concomitant]
     Active Substance: FLUNITRAZEPAM
     Dosage: UNK
  8. DIAZEPAM [Concomitant]
     Active Substance: DIAZEPAM
     Dosage: UNK

REACTIONS (20)
  - Drug dependence [Recovered/Resolved]
  - Diabetes mellitus [Not Recovered/Not Resolved]
  - Erectile dysfunction [Unknown]
  - Intentional product misuse [Unknown]
  - Incorrect product administration duration [Unknown]
  - Withdrawal syndrome [Recovered/Resolved]
  - Heart rate increased [Recovered/Resolved]
  - Dizziness [Recovered/Resolved]
  - Decreased appetite [Recovered/Resolved]
  - Palpitations [Recovered/Resolved]
  - Anxiety [Recovered/Resolved]
  - Ejaculation failure [Not Recovered/Not Resolved]
  - Sexual dysfunction [Not Recovered/Not Resolved]
  - Feeling abnormal [Recovered/Resolved]
  - Penis disorder [Not Recovered/Not Resolved]
  - Depression [Recovered/Resolved]
  - Libido decreased [Unknown]
  - Loss of libido [Unknown]
  - Off label use [Unknown]
  - Drug ineffective for unapproved indication [Unknown]

NARRATIVE: CASE EVENT DATE: 20000201
